FAERS Safety Report 25894072 (Version 1)
Quarter: 2025Q4

REPORT INFORMATION
  Report Type: Spontaneous
  Country: MA (occurrence: MA)
  Receive Date: 20251008
  Receipt Date: 20251008
  Transmission Date: 20260118
  Serious: Yes (Hospitalization, Other)
  Sender: AMGEN
  Company Number: MA-PFIZER INC-PV202500117394

PATIENT
  Age: 39 Year
  Sex: Female
  Weight: 62 kg

DRUGS (1)
  1. ETANERCEPT [Suspect]
     Active Substance: ETANERCEPT
     Indication: Spondylitis
     Dosage: UNK
     Route: 065

REACTIONS (3)
  - Overlap syndrome [Recovering/Resolving]
  - Dermatomyositis [Recovering/Resolving]
  - Lupus-like syndrome [Recovering/Resolving]
